FAERS Safety Report 11114771 (Version 1)
Quarter: 2015Q2

REPORT INFORMATION
  Report Type: Spontaneous
  Country: DE (occurrence: None)
  Receive Date: 20150513
  Receipt Date: 20150513
  Transmission Date: 20150821
  Serious: Yes (Life-Threatening, Other)
  Sender: FDA-Public Use
  Company Number: DE-H14001-15-00667

PATIENT
  Age: 48 Year
  Sex: Male

DRUGS (2)
  1. BLEOMYCIN (BLEOMYCIN) (BLEOMYCIN) [Suspect]
     Active Substance: BLEOMYCIN SULFATE
     Indication: PRODUCT USED FOR UNKNOWN INDICATION
  2. CISPLATIN (CISPLATIN) (CISPLATIN) [Suspect]
     Active Substance: CISPLATIN
     Indication: TESTICULAR SEMINOMA (PURE)
     Dosage: CYCLICAL

REACTIONS (3)
  - Splenic infarction [None]
  - Thrombosis in device [None]
  - Pneumonitis [None]
